FAERS Safety Report 9768065 (Version 2)
Quarter: 2014Q1

REPORT INFORMATION
  Report Type: Spontaneous
  Country: JP (occurrence: JP)
  Receive Date: 20131217
  Receipt Date: 20140311
  Transmission Date: 20141002
  Serious: Yes (Hospitalization, Other)
  Sender: FDA-Public Use
  Company Number: JP-SA-2013SA129428

PATIENT
  Age: 59 Year
  Sex: Female
  Weight: 48 kg

DRUGS (18)
  1. ELPLAT [Suspect]
     Indication: COLON CANCER
     Dosage: INJECTION
     Route: 041
     Dates: start: 20121107, end: 20121107
  2. ELPLAT [Suspect]
     Indication: COLON CANCER
     Dosage: INJECTION
     Route: 041
     Dates: start: 20121128, end: 20121128
  3. ELPLAT [Suspect]
     Indication: COLON CANCER
     Dosage: INJECTION
     Route: 041
     Dates: start: 20121219, end: 20121219
  4. ELPLAT [Suspect]
     Indication: COLON CANCER
     Dosage: INJECTION
     Route: 041
     Dates: start: 20130206, end: 20130206
  5. ELPLAT [Suspect]
     Indication: COLON CANCER
     Dosage: INJECTION
     Route: 041
     Dates: start: 20130227, end: 20130227
  6. ELPLAT [Suspect]
     Indication: COLON CANCER
     Dosage: INJECTION
     Route: 041
     Dates: start: 20130327, end: 20130327
  7. ELPLAT [Suspect]
     Indication: COLON CANCER
     Dosage: INJECTION
     Route: 041
     Dates: start: 20130417, end: 20130417
  8. CAPECITABINE [Suspect]
     Indication: RECTAL CANCER
     Route: 048
     Dates: start: 20121107
  9. CAPECITABINE [Suspect]
     Indication: RECTAL CANCER
     Route: 048
     Dates: start: 20121128
  10. CAPECITABINE [Suspect]
     Indication: RECTAL CANCER
     Route: 048
     Dates: start: 20121219
  11. CAPECITABINE [Suspect]
     Indication: RECTAL CANCER
     Route: 048
     Dates: start: 20130206
  12. CAPECITABINE [Suspect]
     Indication: RECTAL CANCER
     Route: 048
     Dates: start: 20130227
  13. CAPECITABINE [Suspect]
     Indication: RECTAL CANCER
     Route: 048
     Dates: start: 20130327
  14. CAPECITABINE [Suspect]
     Indication: RECTAL CANCER
     Route: 048
     Dates: start: 20130417, end: 20130430
  15. BASEN [Concomitant]
     Dates: start: 20121008
  16. DOGMATYL [Concomitant]
     Dates: start: 20121219, end: 20130507
  17. HERBAL PREPARATION [Concomitant]
     Dates: start: 20121219, end: 20130110
  18. JANUVIA [Concomitant]
     Dates: start: 20130130

REACTIONS (3)
  - Hepatic encephalopathy [Recovered/Resolved]
  - Hyperammonaemia [Recovered/Resolved]
  - Decreased appetite [Unknown]
